FAERS Safety Report 5876083-9 (Version None)
Quarter: 2008Q3

REPORT INFORMATION
  Report Type: 
  Country: None (occurrence: None)
  Receive Date: 20080910
  Receipt Date: 20080828
  Transmission Date: 20090109
  Serious: Yes (Hospitalization)
  Sender: FDA-Public Use
  Company Number: JP-ABBOTT-08P-087-0474967-00

PATIENT
  Age: 83 Year
  Sex: Male

DRUGS (7)
  1. LEUPROLIDE ACETATE [Suspect]
     Indication: PROSTATE CANCER STAGE II
     Route: 058
     Dates: start: 20080819
  2. LEUPROLIDE ACETATE [Suspect]
     Route: 058
     Dates: start: 20071129, end: 20071129
  3. LEUPROLIDE ACETATE [Suspect]
     Route: 058
     Dates: start: 20080206, end: 20080206
  4. LEUPROLIDE ACETATE [Suspect]
     Route: 058
     Dates: start: 20080304, end: 20080304
  5. LEUPROLIDE ACETATE [Suspect]
     Route: 058
     Dates: start: 20080527, end: 20080527
  6. TAMSULOSIN HCL [Concomitant]
     Indication: BENIGN PROSTATIC HYPERPLASIA
     Route: 048
     Dates: start: 20080527
  7. KEISHIBUKURYOUGAN [Concomitant]
     Indication: HOT FLUSH
     Route: 048
     Dates: start: 20080527, end: 20080722

REACTIONS (1)
  - CHOLECYSTITIS ACUTE [None]
